FAERS Safety Report 5469886-6 (Version None)
Quarter: 2007Q3

REPORT INFORMATION
  Report Type: 
  Country: None (occurrence: None)
  Receive Date: 20070927
  Receipt Date: 20070920
  Transmission Date: 20080115
  Serious: Yes (Hospitalization)
  Sender: FDA-Public Use
  Company Number: US-SHR-US-2007-030092

PATIENT
  Age: 61 Year
  Sex: Male
  Weight: 72.562 kg

DRUGS (1)
  1. BETASERON [Suspect]
     Indication: RELAPSING-REMITTING MULTIPLE SCLEROSIS
     Dosage: 8 MIU, EVERY 2D
     Route: 058
     Dates: start: 19951030

REACTIONS (4)
  - ASTHENIA [None]
  - MULTIPLE SCLEROSIS [None]
  - SMALL INTESTINAL OBSTRUCTION [None]
  - VOMITING [None]
